FAERS Safety Report 19657257 (Version 1)
Quarter: 2021Q3

REPORT INFORMATION
  Report Type: Spontaneous
  Country: IT (occurrence: IT)
  Receive Date: 20210804
  Receipt Date: 20210804
  Transmission Date: 20211014
  Serious: Yes (Hospitalization)
  Sender: FDA-Public Use
  Company Number: IT-MYLANLABS-2021M1047608

PATIENT
  Age: 26 Year
  Sex: Female

DRUGS (4)
  1. TALOFEN [Suspect]
     Active Substance: PROMAZINE HYDROCHLORIDE
     Indication: PERSONALITY DISORDER
     Dosage: 30 GTT DROPS, TOTAL
     Route: 048
     Dates: start: 20191121, end: 20191121
  2. LORAZEPAM MYLAN [Suspect]
     Active Substance: LORAZEPAM
     Indication: PERSONALITY DISORDER
     Dosage: 12.5 MILLIGRAM, TOTAL
     Route: 048
     Dates: start: 20191121, end: 20191121
  3. FLUOXETINE [Concomitant]
     Active Substance: FLUOXETINE HYDROCHLORIDE
     Indication: PERSONALITY DISORDER
     Dosage: 40 MILLIGRAM, QD
     Route: 048
  4. GABAPENTIN. [Suspect]
     Active Substance: GABAPENTIN
     Indication: PERSONALITY DISORDER
     Dosage: 400 MILLIGRAM, TOTAL
     Route: 048
     Dates: start: 20191121, end: 20191121

REACTIONS (4)
  - Suicidal ideation [Recovering/Resolving]
  - Sopor [Recovering/Resolving]
  - Sedation [Recovering/Resolving]
  - Drug abuse [Recovering/Resolving]

NARRATIVE: CASE EVENT DATE: 20191121
